FAERS Safety Report 4879450-5 (Version None)
Quarter: 2005Q4

REPORT INFORMATION
  Report Type: 
  Country: None (occurrence: None)
  Receive Date: 20051209
  Receipt Date: 20050523
  Transmission Date: 20060501
  Serious: Yes (Other)
  Sender: FDA-Public Use
  Company Number: 2013360

PATIENT
  Age: 53 Year
  Sex: Male

DRUGS (11)
  1. OXYCONTIN [Suspect]
     Indication: PAIN
     Dosage: 40 MG , BID, ORAL
     Route: 048
     Dates: start: 19991011
  2. MAG-OXIDE [Concomitant]
  3. FOLIC ACID [Concomitant]
  4. PRINIVIL [Concomitant]
  5. VEETIDS [Concomitant]
  6. LASIX [Concomitant]
  7. GLUCOPHAE ^ARON^ [Concomitant]
  8. GLUCOTROL [Concomitant]
  9. ROBAXIN [Concomitant]
  10. CARDURA [Concomitant]
  11. LORAZEPAM [Concomitant]

REACTIONS (6)
  - ANXIETY [None]
  - DRUG DEPENDENCE [None]
  - EMOTIONAL DISTRESS [None]
  - HEADACHE [None]
  - PAIN [None]
  - VISION BLURRED [None]
